FAERS Safety Report 21485340 (Version 3)
Quarter: 2022Q4

REPORT INFORMATION
  Report Type: Report from Study
  Country: US (occurrence: US)
  Receive Date: 20221020
  Receipt Date: 20221219
  Transmission Date: 20230113
  Serious: No
  Sender: FDA-Public Use
  Company Number: US-SAGE-2022SAGE000103

PATIENT
  Age: 12 Year
  Sex: Male

DRUGS (2)
  1. ZULRESSO [Suspect]
     Active Substance: BREXANOLONE
     Indication: Febrile infection-related epilepsy syndrome
     Dosage: UNK
     Route: 042
     Dates: start: 20221010, end: 20221015
  2. ZULRESSO [Suspect]
     Active Substance: BREXANOLONE
     Indication: Cortical dysplasia

REACTIONS (3)
  - Product use in unapproved indication [Unknown]
  - Off label use [Unknown]
  - Product use issue [Unknown]

NARRATIVE: CASE EVENT DATE: 20221010
